FAERS Safety Report 7585599-9 (Version None)
Quarter: 2011Q2

REPORT INFORMATION
  Report Type: 
  Country: None (occurrence: None)
  Receive Date: 20110624
  Receipt Date: 20110613
  Transmission Date: 20111010
  Serious: Yes (Other)
  Sender: FDA-Public Use
  Company Number: AUR-APL-2011-01469

PATIENT
  Age: 67 Year
  Sex: Female

DRUGS (2)
  1. CALCIUM AND VITAMIN D (CALCIUM D3) [Concomitant]
  2. ALENDRONATE SODIUM [Suspect]
     Indication: OSTEOPOROSIS
     Dosage: 70 MG, 1 IN 7 D, ORAL
     Route: 048

REACTIONS (6)
  - WEIGHT BEARING DIFFICULTY [None]
  - ARTHRALGIA [None]
  - JOINT CREPITATION [None]
  - EXOSTOSIS [None]
  - FEMUR FRACTURE [None]
  - PATHOLOGICAL FRACTURE [None]
